FAERS Safety Report 10285064 (Version 3)
Quarter: 2014Q4

REPORT INFORMATION
  Report Type: Spontaneous
  Country: US (occurrence: US)
  Receive Date: 20140708
  Receipt Date: 20141210
  Transmission Date: 20150528
  Serious: Yes (Death, Other)
  Sender: FDA-Public Use
  Company Number: US-MERCK-1407USA003105

PATIENT
  Sex: Female
  Weight: 69.84 kg

DRUGS (1)
  1. JANUVIA [Suspect]
     Active Substance: SITAGLIPTIN PHOSPHATE
     Indication: TYPE 2 DIABETES MELLITUS
     Dosage: 50 MG, QD
     Route: 048
     Dates: start: 20071001, end: 20100514

REACTIONS (13)
  - Respiratory arrest [Fatal]
  - Gastritis [Unknown]
  - Constipation [Unknown]
  - Diabetes mellitus [Unknown]
  - Metastases to liver [Unknown]
  - Metastases to lymph nodes [Unknown]
  - Confusional state [Unknown]
  - Vision blurred [Unknown]
  - Performance status decreased [Unknown]
  - Asthenia [Unknown]
  - Decreased appetite [Unknown]
  - Pancreatic carcinoma metastatic [Unknown]
  - Pancreatitis [Unknown]

NARRATIVE: CASE EVENT DATE: 2009
